FAERS Safety Report 22825761 (Version 3)
Quarter: 2023Q4

REPORT INFORMATION
  Report Type: Spontaneous
  Country: JP (occurrence: JP)
  Receive Date: 20230816
  Receipt Date: 20231218
  Transmission Date: 20240110
  Serious: Yes (Life-Threatening)
  Sender: FDA-Public Use
  Company Number: JP-IQVIA-JT2023JP000120

PATIENT
  Age: 89 Year
  Sex: Male

DRUGS (14)
  1. FERRIC CITRATE ANHYDROUS [Suspect]
     Active Substance: FERRIC CITRATE ANHYDROUS
     Indication: Hyperphosphataemia
     Dosage: 250 MILLIGRAM, TID
     Route: 048
  2. ENARODUSTAT [Suspect]
     Active Substance: ENARODUSTAT
     Indication: Nephrogenic anaemia
     Dosage: 4 MILLIGRAM
     Route: 048
     Dates: start: 20220829
  3. ENARODUSTAT [Suspect]
     Active Substance: ENARODUSTAT
     Dosage: 6 MILLIGRAM
     Route: 048
     Dates: start: 20230118
  4. WARFARIN POTASSIUM [Concomitant]
     Active Substance: WARFARIN POTASSIUM
     Indication: Mitral valve stenosis
     Dosage: 1.75 MILLIGRAM
     Route: 048
  5. WARFARIN POTASSIUM [Concomitant]
     Active Substance: WARFARIN POTASSIUM
     Dosage: 2 MILLIGRAM
     Route: 048
  6. CLOPIDOGREL BISULFATE [Concomitant]
     Active Substance: CLOPIDOGREL BISULFATE
     Indication: Mitral valve stenosis
     Dosage: 25 MILLIGRAM
     Route: 065
  7. LEVOTHYROXINE SODIUM [Concomitant]
     Active Substance: LEVOTHYROXINE SODIUM
     Indication: Product used for unknown indication
     Dosage: 100 MICROGRAM
     Route: 065
  8. FUROSEMIDE [Concomitant]
     Active Substance: FUROSEMIDE
     Indication: Product used for unknown indication
     Dosage: 40 MILLIGRAM
     Route: 065
  9. FEBUXOSTAT [Concomitant]
     Active Substance: FEBUXOSTAT
     Indication: Product used for unknown indication
     Dosage: 10 MILLIGRAM
     Route: 065
  10. LOSARTAN POTASSIUM [Concomitant]
     Active Substance: LOSARTAN POTASSIUM
     Indication: Product used for unknown indication
     Dosage: 12.5 MILLIGRAM
     Route: 065
  11. FOSRENOL [Concomitant]
     Active Substance: LANTHANUM CARBONATE
     Indication: Hyperphosphataemia
     Dosage: 250 MILLIGRAM, TID
     Route: 065
  12. KAYEXALATE [Concomitant]
     Active Substance: SODIUM POLYSTYRENE SULFONATE
     Indication: Hyperkalaemia
     Dosage: 1 DOSAGE FORM
     Route: 065
  13. KETOPROFEN [Concomitant]
     Active Substance: KETOPROFEN
     Indication: Product used for unknown indication
     Dosage: UNK
     Route: 003
  14. DIPHENHYDRAMINE [Concomitant]
     Active Substance: DIPHENHYDRAMINE
     Indication: Product used for unknown indication
     Dosage: UNK
     Route: 065

REACTIONS (1)
  - Atrial thrombosis [Not Recovered/Not Resolved]

NARRATIVE: CASE EVENT DATE: 20230405
